FAERS Safety Report 5494338-7 (Version None)
Quarter: 2007Q4

REPORT INFORMATION
  Report Type: 
  Country: None (occurrence: None)
  Receive Date: 20071022
  Receipt Date: 20071012
  Transmission Date: 20080405
  Serious: Yes (Hospitalization)
  Sender: FDA-Public Use
  Company Number: E2090-00328-SPO-JP

PATIENT
  Age: 24 Year
  Sex: Male

DRUGS (4)
  1. ZONEGRAN [Suspect]
     Indication: EPILEPSY
     Dosage: 160 MG, ORAL, GRADUAL INCREASE FROM 160MG TO 300MG; ORAL, 300MG, ORAL
     Route: 048
  2. CARBAMAZEPINE [Suspect]
     Dosage: 400 MG, ORAL, 600 MG, ORAL
     Route: 048
  3. RISPERIDONE [Concomitant]
  4. CLONAZEPAM [Concomitant]

REACTIONS (11)
  - ABASIA [None]
  - AGGRESSION [None]
  - AGITATION [None]
  - ASPARTATE AMINOTRANSFERASE INCREASED [None]
  - BLOOD PRESSURE FLUCTUATION [None]
  - DYSPHAGIA [None]
  - INCONTINENCE [None]
  - NEUROLEPTIC MALIGNANT SYNDROME [None]
  - SALIVARY HYPERSECRETION [None]
  - SOMNOLENCE [None]
  - TORTICOLLIS [None]
